FAERS Safety Report 8898374 (Version 1)
Quarter: 2012Q4

REPORT INFORMATION
  Report Type: 
  Country: US (occurrence: US)
  Receive Date: 20121108
  Receipt Date: 20121108
  Transmission Date: 20130627
  Serious: No
  Sender: FDA-Public Use
  Company Number: US-AMGEN-USASP2012028185

PATIENT
  Age: 45 Year
  Sex: Female
  Weight: 86.17 kg

DRUGS (12)
  1. ENBREL [Suspect]
     Indication: ANKYLOSING SPONDYLITIS
     Dosage: 50 mg, qwk
     Dates: start: 20120416
  2. PRISTIQ [Concomitant]
     Dosage: 50 mg, qd
     Route: 048
  3. XANAX [Concomitant]
     Dosage: 0.5 mg, bid
     Route: 048
  4. AMBIEN [Concomitant]
     Dosage: 10 mg, qd
     Route: 048
  5. PREMARIN [Concomitant]
     Dosage: 1.25 mg, qd
     Route: 048
  6. SYNTHROID [Concomitant]
     Dosage: 50 mug, qd
     Route: 048
  7. OMEPRAZOLE [Concomitant]
     Dosage: 20 mg, UNK
  8. PROPRANOLOL HCL [Concomitant]
     Dosage: 60 mg, bid
     Route: 048
  9. FLEXERIL                           /00428402/ [Concomitant]
     Dosage: 10 mg, bid
     Route: 048
  10. MULTIVITAMIN                       /00831701/ [Concomitant]
     Dosage: UNK UNK, qd
     Route: 048
  11. VITAMIN D /00107901/ [Concomitant]
     Dosage: 2000 IU, UNK
  12. IBUPROFEN [Concomitant]
     Indication: INFLAMMATION
     Dosage: 800 mg, UNK

REACTIONS (9)
  - Syncope [Recovered/Resolved]
  - Ankylosing spondylitis [Not Recovered/Not Resolved]
  - Tenderness [Unknown]
  - Urticaria [Unknown]
  - Injection site urticaria [Not Recovered/Not Resolved]
  - Injection site induration [Not Recovered/Not Resolved]
  - Injection site erythema [Not Recovered/Not Resolved]
  - Injection site pain [Not Recovered/Not Resolved]
  - Injection site swelling [Not Recovered/Not Resolved]
